FAERS Safety Report 25645850 (Version 2)
Quarter: 2025Q3

REPORT INFORMATION
  Report Type: Spontaneous
  Country: US (occurrence: US)
  Receive Date: 20250805
  Receipt Date: 20250901
  Transmission Date: 20251020
  Serious: Yes (Other)
  Sender: BAUSCH AND LOMB
  Company Number: US-BAUSCHBL-2025BNL013296

PATIENT
  Age: 76 Year
  Sex: Female

DRUGS (1)
  1. MIEBO [Suspect]
     Active Substance: PERFLUOROHEXYLOCTANE
     Indication: Dry eye
     Route: 065
     Dates: start: 20250721, end: 202508

REACTIONS (5)
  - Cataract operation [Not Recovered/Not Resolved]
  - Product use complaint [Unknown]
  - Product packaging quantity issue [Unknown]
  - Product knowledge deficit [Unknown]
  - Product complaint [Unknown]

NARRATIVE: CASE EVENT DATE: 20250801
